FAERS Safety Report 5339498-3 (Version None)
Quarter: 2007Q2

REPORT INFORMATION
  Report Type: 
  Country: None (occurrence: None)
  Receive Date: 20070525
  Receipt Date: 20070521
  Transmission Date: 20071010
  Serious: Yes (Life-Threatening)
  Sender: FDA-Public Use
  Company Number: 2007-158936-NL

PATIENT
  Age: 69 Year
  Sex: Male

DRUGS (9)
  1. MIRTAZAPINE [Suspect]
     Dosage: 30 MG ORAL
     Route: 048
     Dates: start: 20050801
  2. CHLORAL HYDRATE [Concomitant]
  3. MAGNESIOCARD [Concomitant]
  4. VENLAFAXIINE HCL [Concomitant]
  5. SERTRALINE [Concomitant]
  6. PERINDOPRIL [Concomitant]
  7. METOPROLOL SUCCINATE [Concomitant]
  8. ATORVASTATIN CALCIUM [Concomitant]
  9. PHENPROCOUMON [Concomitant]

REACTIONS (3)
  - HAEMORRHAGE [None]
  - SKIN LACERATION [None]
  - SUICIDE ATTEMPT [None]
